FAERS Safety Report 9284119 (Version 1)
Quarter: 2013Q2

REPORT INFORMATION
  Report Type: Spontaneous
  Country: US (occurrence: US)
  Receive Date: 20130509
  Receipt Date: 20130509
  Transmission Date: 20140414
  Serious: Yes (Other)
  Sender: FDA-Public Use
  Company Number: US-RB-007415-07

PATIENT
  Age: 30 Year
  Sex: Female
  Weight: 76 kg

DRUGS (5)
  1. SUBOXONE [Suspect]
     Route: 060
     Dates: start: 20070305, end: 20070326
  2. SUBOXONE [Suspect]
     Indication: DRUG DEPENDENCE
     Route: 060
     Dates: start: 20070327, end: 20070501
  3. SUBOXONE [Suspect]
     Route: 060
     Dates: start: 20070502, end: 20070718
  4. IRON [Concomitant]
     Indication: PREGNANCY
     Dosage: DOSE UNKNOWN
     Route: 048
  5. PRENATAL VITAMINS [Concomitant]
     Indication: PREGNANCY
     Dosage: DOSE UNKNOWN
     Route: 048

REACTIONS (3)
  - Exposure during pregnancy [Recovered/Resolved]
  - Oligohydramnios [Recovered/Resolved]
  - Meconium in amniotic fluid [Recovered/Resolved]
